FAERS Safety Report 7809077-4 (Version None)
Quarter: 2011Q4

REPORT INFORMATION
  Report Type: 
  Country: None (occurrence: None)
  Receive Date: 20111012
  Receipt Date: 20111005
  Transmission Date: 20120403
  Serious: Yes (Other)
  Sender: FDA-Public Use
  Company Number: JP-JNJFOC-20111003542

PATIENT
  Age: 60 Year
  Sex: Female

DRUGS (3)
  1. DOXORUBICIN HCL [Suspect]
     Indication: OVARIAN CANCER RECURRENT
     Route: 042
  2. DEXAMETHASONE [Concomitant]
     Route: 065
  3. DOXORUBICIN HCL [Suspect]
     Route: 042
     Dates: start: 20110801

REACTIONS (1)
  - PHARYNGEAL OEDEMA [None]
